FAERS Safety Report 9906350 (Version 2)
Quarter: 2014Q1

REPORT INFORMATION
  Report Type: Spontaneous
  Country: US (occurrence: US)
  Receive Date: 20140218
  Receipt Date: 20140218
  Transmission Date: 20141002
  Serious: No
  Sender: FDA-Public Use
  Company Number: US-GILEAD-2012-0051515

PATIENT
  Age: 67 Year
  Sex: Male

DRUGS (2)
  1. LETAIRIS [Suspect]
     Indication: PRODUCT USED FOR UNKNOWN INDICATION
     Dosage: 10 MG, UNK
     Route: 048
     Dates: start: 20120209
  2. ADCIRCA [Concomitant]

REACTIONS (3)
  - Oedema [Unknown]
  - Oedema peripheral [Unknown]
  - Dyspnoea [Unknown]
